FAERS Safety Report 9360807 (Version 1)
Quarter: 2013Q2

REPORT INFORMATION
  Report Type: Spontaneous
  Country: DE (occurrence: DE)
  Receive Date: 20130621
  Receipt Date: 20130621
  Transmission Date: 20140414
  Serious: Yes (Other)
  Sender: FDA-Public Use
  Company Number: DE-ELI_LILLY_AND_COMPANY-DE201306003320

PATIENT
  Sex: Female

DRUGS (3)
  1. FORSTEO [Suspect]
     Indication: OSTEOPOROSIS
     Dosage: UNK, QD
     Route: 058
     Dates: start: 20111206
  2. TILIDIN [Concomitant]
     Dosage: UNK, UNKNOWN
     Route: 065
  3. NOVAMINSULFON [Concomitant]
     Dosage: UNK, UNKNOWN
     Route: 065

REACTIONS (2)
  - Heart rate irregular [Not Recovered/Not Resolved]
  - Loss of control of legs [Not Recovered/Not Resolved]
